FAERS Safety Report 14941067 (Version 1)
Quarter: 2018Q2

REPORT INFORMATION
  Report Type: Spontaneous
  Country: FR (occurrence: FR)
  Receive Date: 20180525
  Receipt Date: 20180525
  Transmission Date: 20180711
  Serious: Yes (Hospitalization)
  Sender: FDA-Public Use
  Company Number: FR-PFIZER INC-2018212145

PATIENT
  Age: 54 Year
  Sex: Male
  Weight: 94 kg

DRUGS (6)
  1. THERALENE [Suspect]
     Active Substance: TRIMEPRAZINE
     Indication: SUICIDE ATTEMPT
     Dosage: 375 MG, UNK
     Route: 048
     Dates: start: 20180210, end: 20180210
  2. IBUPROFEN. [Suspect]
     Active Substance: IBUPROFEN
     Indication: FAMILIAL RISK FACTOR
     Dosage: 4800 MG, UNK
     Route: 048
     Dates: start: 20180210, end: 20180210
  3. VENLAFAXINE HCL [Suspect]
     Active Substance: VENLAFAXINE HYDROCHLORIDE
     Indication: SUICIDE ATTEMPT
     Dosage: 750 MG, UNK
     Route: 048
     Dates: start: 20180210, end: 20180210
  4. ALCOOL [Concomitant]
     Active Substance: ALCOHOL
  5. DIAZEPAM. [Suspect]
     Active Substance: DIAZEPAM
     Indication: SUICIDE ATTEMPT
     Dosage: 100 MG, UNK
     Route: 048
     Dates: start: 20180210, end: 20180210
  6. ASPIRINE [Suspect]
     Active Substance: ASPIRIN
     Indication: SUICIDE ATTEMPT
     Dosage: 5000 MG, UNK
     Route: 048
     Dates: start: 20180210, end: 20180210

REACTIONS (3)
  - Overdose [Recovered/Resolved]
  - Suicide attempt [Recovered/Resolved]
  - Somnolence [Recovered/Resolved]

NARRATIVE: CASE EVENT DATE: 20180210
